FAERS Safety Report 5783183-0 (Version None)
Quarter: 2008Q2

REPORT INFORMATION
  Report Type: 
  Country: None (occurrence: None)
  Receive Date: 20080619
  Receipt Date: 20080619
  Transmission Date: 20081010
  Serious: Yes (Hospitalization)
  Sender: FDA-Public Use
  Company Number: None

PATIENT
  Sex: Male
  Weight: 80.1 kg

DRUGS (2)
  1. CLOFARABINE 20 MG/ML GENZYME [Suspect]
     Indication: ACUTE MYELOID LEUKAEMIA
     Dosage: 58.2 MG DAILY ON DAYS 1-5 IV
     Route: 042
     Dates: start: 20080604, end: 20080608
  2. GEMTUZUMAB OZOGAMICIN 5 MG VIAL [Suspect]
     Indication: ACUTE MYELOID LEUKAEMIA
     Dosage: 5.8 MG DAILY ON D 1, 4, 7 IV
     Route: 042
     Dates: start: 20080604, end: 20080610

REACTIONS (4)
  - FEBRILE NEUTROPENIA [None]
  - HAEMATURIA [None]
  - HEADACHE [None]
  - THROMBOCYTOPENIA [None]
